FAERS Safety Report 10176870 (Version 1)
Quarter: 2014Q2

REPORT INFORMATION
  Report Type: Report from Study
  Country: DE (occurrence: DE)
  Receive Date: 20140516
  Receipt Date: 20140516
  Transmission Date: 20141212
  Serious: Yes (Hospitalization)
  Sender: FDA-Public Use
  Company Number: DE-SHIRE-DE201402089

PATIENT
  Sex: Male

DRUGS (4)
  1. IDURSULFASE [Suspect]
     Indication: MUCOPOLYSACCHARIDOSIS II
     Dosage: UNK UNK, UNKNOWN
     Route: 042
     Dates: start: 20100310, end: 20100719
  2. DIAZEPAM [Concomitant]
     Indication: FEBRILE CONVULSION
     Dosage: 10.0 MG, AS REQ^D
     Route: 065
  3. RISPERDAL [Concomitant]
     Indication: PSYCHOMOTOR HYPERACTIVITY
     Dosage: 0.5 MG, UNKNOWN
     Route: 065
  4. VIGANTOLETTEN [Concomitant]
     Indication: VITAMIN D DEFICIENCY
     Dosage: 100.0 IU, UNKNOWN
     Route: 065

REACTIONS (2)
  - Umbilical hernia [Unknown]
  - Catheter management [Unknown]
